FAERS Safety Report 24965192 (Version 1)
Quarter: 2025Q1

REPORT INFORMATION
  Report Type: Spontaneous
  Country: US (occurrence: None)
  Receive Date: 20250212
  Receipt Date: 20250212
  Transmission Date: 20250408
  Serious: Yes (Other)
  Sender: FDA-CTU
  Company Number: None

PATIENT
  Age: 79 Year
  Sex: Male
  Weight: 73.35 kg

DRUGS (1)
  1. OPSUMIT [Suspect]
     Active Substance: MACITENTAN
     Indication: Pulmonary arterial hypertension
     Dosage: FREQUENCY : DAILY;?
     Route: 048
     Dates: start: 20250115

REACTIONS (5)
  - Peripheral swelling [None]
  - Constipation [None]
  - Epistaxis [None]
  - Therapy change [None]
  - Therapy interrupted [None]

NARRATIVE: CASE EVENT DATE: 20250211
